FAERS Safety Report 4852798-6 (Version None)
Quarter: 2005Q4

REPORT INFORMATION
  Report Type: 
  Country: None (occurrence: None)
  Receive Date: 20051212
  Receipt Date: 20051212
  Transmission Date: 20060501
  Serious: Yes (Hospitalization)
  Sender: FDA-Public Use
  Company Number: None

PATIENT
  Age: 88 Year
  Sex: Male
  Weight: 80.7 kg

DRUGS (1)
  1. PERCOCET [Suspect]
     Indication: HERNIA PAIN
     Dosage: 1 TABLET Q6H PRN  PO    1 DAY PRIOR
     Route: 048

REACTIONS (1)
  - FALL [None]
